FAERS Safety Report 7312162-7 (Version None)
Quarter: 2011Q1

REPORT INFORMATION
  Report Type: 
  Country: None (occurrence: None)
  Receive Date: 20110224
  Receipt Date: 20110218
  Transmission Date: 20110831
  Serious: Yes (Other)
  Sender: FDA-Public Use
  Company Number: A0856238A

PATIENT
  Sex: Female

DRUGS (7)
  1. RAMIPRIL [Concomitant]
     Route: 065
  2. BONEFOS [Concomitant]
     Route: 065
  3. TYKERB [Suspect]
     Dosage: 1250MG PER DAY
     Route: 048
     Dates: start: 20100202, end: 20100801
  4. XELODA [Suspect]
     Route: 065
  5. BONEFOS [Concomitant]
     Route: 065
  6. COLACE [Concomitant]
     Route: 065
  7. ADALAT [Concomitant]
     Route: 065

REACTIONS (8)
  - CARDIAC FLUTTER [None]
  - ERYTHEMA [None]
  - ONYCHOMADESIS [None]
  - BLISTER [None]
  - PALPITATIONS [None]
  - PAIN IN EXTREMITY [None]
  - BRAIN NEOPLASM [None]
  - LOCALISED INFECTION [None]
